FAERS Safety Report 24798786 (Version 1)
Quarter: 2025Q1

REPORT INFORMATION
  Report Type: Report from Study
  Country: US (occurrence: US)
  Receive Date: 20250102
  Receipt Date: 20250102
  Transmission Date: 20250409
  Serious: Yes (Congenital Anomaly, Other)
  Sender: VIIV
  Company Number: US-ViiV Healthcare Limited-A1042298A

PATIENT

DRUGS (9)
  1. ZIDOVUDINE [Suspect]
     Active Substance: ZIDOVUDINE
     Indication: Antiretroviral therapy
     Route: 064
  2. PREZISTA [Suspect]
     Active Substance: DARUNAVIR ETHANOLATE
     Indication: Antiretroviral therapy
     Dosage: 1200 MG, QD
     Route: 064
  3. INTELENCE [Suspect]
     Active Substance: ETRAVIRINE
     Indication: Antiretroviral therapy
     Route: 064
  4. ISENTRESS [Suspect]
     Active Substance: RALTEGRAVIR POTASSIUM
     Indication: Antiretroviral therapy
     Dosage: 800 MG, QD
     Route: 064
  5. TRUVADA [Suspect]
     Active Substance: EMTRICITABINE\TENOFOVIR DISOPROXIL FUMARATE
     Indication: Antiretroviral therapy
     Dosage: 1 DF, QD
     Route: 064
  6. APTIVUS [Suspect]
     Active Substance: TIPRANAVIR
     Indication: Antiretroviral therapy
     Dosage: 1000 MG, QD
     Route: 064
  7. INSULIN ASPART [Suspect]
     Active Substance: INSULIN ASPART
     Indication: Gestational diabetes
     Route: 064
  8. NORVIR [Suspect]
     Active Substance: RITONAVIR
     Indication: Antiretroviral therapy
     Route: 064
  9. NORVIR [Suspect]
     Active Substance: RITONAVIR
     Route: 064

REACTIONS (16)
  - Tethered cord syndrome [Unknown]
  - Lipodystrophy acquired [Unknown]
  - Genitalia external ambiguous [Unknown]
  - Gastrointestinal disorder congenital [Unknown]
  - Exomphalos [Unknown]
  - Caudal regression syndrome [Unknown]
  - Meningomyelocele [Unknown]
  - Sepsis neonatal [Unknown]
  - Congenital musculoskeletal disorder [Unknown]
  - Cloacal exstrophy [Unknown]
  - Bladder agenesis [Unknown]
  - Meconium stain [Unknown]
  - Blood iron decreased [Unknown]
  - Umbilical cord abnormality [Unknown]
  - Erythema [Unknown]
  - Foetal exposure during pregnancy [Unknown]
